FAERS Safety Report 6829788-7 (Version None)
Quarter: 2010Q3

REPORT INFORMATION
  Report Type: 
  Country: None (occurrence: None)
  Receive Date: 20100709
  Receipt Date: 20080123
  Transmission Date: 20110219
  Serious: No
  Sender: FDA-Public Use
  Company Number: US-PFIZER INC-2007014405

PATIENT
  Sex: Female
  Weight: 54 kg

DRUGS (4)
  1. CHANTIX [Suspect]
     Indication: SMOKING CESSATION THERAPY
     Route: 048
     Dates: start: 20070107
  2. VICON FORTE [Concomitant]
  3. VITAMINS [Concomitant]
  4. DICLOFENAC SODIUM [Concomitant]
     Route: 048

REACTIONS (8)
  - ABDOMINAL DISTENSION [None]
  - ABNORMAL DREAMS [None]
  - AGITATION [None]
  - ARTHROPATHY [None]
  - NAUSEA [None]
  - PAIN [None]
  - SLEEP TERROR [None]
  - WEIGHT INCREASED [None]
